FAERS Safety Report 19689565 (Version 2)
Quarter: 2021Q3

REPORT INFORMATION
  Report Type: Report from Study
  Country: KR (occurrence: KR)
  Receive Date: 20210811
  Receipt Date: 20210816
  Transmission Date: 20211014
  Serious: Yes (Hospitalization)
  Sender: FDA-Public Use
  Company Number: KR-EISAI MEDICAL RESEARCH-EC-2021-097541

PATIENT
  Age: 73 Year
  Sex: Male
  Weight: 70 kg

DRUGS (4)
  1. GLITAMIN [Concomitant]
     Indication: PROPHYLAXIS
     Dates: start: 20201029
  2. PARIET [Suspect]
     Active Substance: RABEPRAZOLE SODIUM
     Indication: PROPHYLAXIS AGAINST GASTROINTESTINAL ULCER
     Route: 048
     Dates: start: 20210506
  3. DUOWELL [Concomitant]
     Indication: HYPERTENSION
     Dates: start: 20210205
  4. ASPIRIN PROTECT [Concomitant]
     Active Substance: ASPIRIN
     Dates: start: 20201029

REACTIONS (1)
  - Herpes zoster oticus [Recovered/Resolved]

NARRATIVE: CASE EVENT DATE: 20210511
